FAERS Safety Report 9861597 (Version 2)
Quarter: 2014Q1

REPORT INFORMATION
  Report Type: Report from Study
  Country: CA (occurrence: CA)
  Receive Date: 20140203
  Receipt Date: 20140226
  Transmission Date: 20141002
  Serious: Yes (Hospitalization, Other)
  Sender: FDA-Public Use
  Company Number: CA-ROCHE-1338583

PATIENT
  Age: 75 Year
  Sex: Male

DRUGS (6)
  1. RITUXAN [Suspect]
     Indication: RHEUMATOID ARTHRITIS
     Dosage: DATE OF LAST RITUXIMAB: 27/NOV/2013.
     Route: 042
     Dates: start: 20070412
  2. PREDNISONE [Concomitant]
  3. METFORMIN [Concomitant]
  4. DIAMICRON [Concomitant]
  5. VICTOZA [Concomitant]
  6. LYRICA [Concomitant]

REACTIONS (5)
  - Nephrolithiasis [Unknown]
  - Pneumonia [Unknown]
  - Dehydration [Unknown]
  - Asthenia [Unknown]
  - Arthralgia [Not Recovered/Not Resolved]
